FAERS Safety Report 5190938-2 (Version None)
Quarter: 2006Q4

REPORT INFORMATION
  Report Type: 
  Country: None (occurrence: None)
  Receive Date: 20061222
  Receipt Date: 20061218
  Transmission Date: 20070319
  Serious: Yes (Death, Other)
  Sender: FDA-Public Use
  Company Number: MZ-BOEHRINGER INGELHEIM PHARMACEUTICALS, INC.-2006-DE-06735GD

PATIENT

DRUGS (2)
  1. NEVIRAPINE [Suspect]
     Indication: HIV INFECTION
  2. ANTI-HIV AGENTS [Suspect]
     Indication: HIV INFECTION

REACTIONS (2)
  - DEATH [None]
  - STEVENS-JOHNSON SYNDROME [None]
